FAERS Safety Report 6027772-7 (Version None)
Quarter: 2009Q1

REPORT INFORMATION
  Report Type: 
  Country: None (occurrence: None)
  Receive Date: 20090105
  Receipt Date: 20081224
  Transmission Date: 20090719
  Serious: Yes (Hospitalization)
  Sender: FDA-Public Use
  Company Number: FR-WYE-H07423308

PATIENT
  Sex: Female

DRUGS (7)
  1. INIPOMP [Suspect]
     Indication: GASTRODUODENAL ULCER
     Dosage: UNKNOWN
     Route: 048
     Dates: start: 20080307, end: 20080308
  2. ZOCOR [Suspect]
     Indication: DYSLIPIDAEMIA
     Route: 048
     Dates: start: 20080307, end: 20080308
  3. NEXIUM [Concomitant]
     Dosage: UNKNOWN
  4. DIFFU K [Concomitant]
     Dosage: UNKNOWN
  5. SECTRAL [Concomitant]
     Dosage: UNKNOWN
  6. ALDACTAZINE [Suspect]
     Indication: HYPERTENSION
     Dosage: UNKNOWN
     Route: 048
     Dates: start: 20080307, end: 20080309
  7. CRESTOR [Concomitant]
     Dosage: UNKNOWNU
     Route: 048

REACTIONS (2)
  - DERMATITIS EXFOLIATIVE [None]
  - PYREXIA [None]
